FAERS Safety Report 8091542-9 (Version None)
Quarter: 2012Q1

REPORT INFORMATION
  Report Type: 
  Country: None (occurrence: None)
  Receive Date: 20120129
  Receipt Date: 20110912
  Transmission Date: 20120608
  Serious: No
  Sender: FDA-Public Use
  Company Number: US-ABBOTT-11P-163-0853835-00

PATIENT
  Age: 65 Year
  Sex: Female

DRUGS (5)
  1. ACTOS [Concomitant]
     Indication: DIABETES MELLITUS
  2. METROPOLOL [Concomitant]
     Indication: HYPERTENSION
  3. HUMIRA [Suspect]
     Indication: PSORIASIS
     Dates: start: 20110329
  4. QUINAPRIL [Concomitant]
     Indication: BLOOD CHOLESTEROL INCREASED
  5. METFORMIN HCL [Concomitant]
     Indication: DIABETES MELLITUS

REACTIONS (1)
  - BACK PAIN [None]
